FAERS Safety Report 19944970 (Version 1)
Quarter: 2021Q4

REPORT INFORMATION
  Report Type: Spontaneous
  Country: AT (occurrence: AT)
  Receive Date: 20211012
  Receipt Date: 20211012
  Transmission Date: 20220303
  Serious: Yes (Hospitalization, Other)
  Sender: FDA-Public Use
  Company Number: AT-MLMSERVICE-20210521-2891051-2

PATIENT
  Age: 66 Year
  Sex: Female

DRUGS (1)
  1. EPIRUBICIN [Suspect]
     Active Substance: EPIRUBICIN
     Indication: Breast cancer
     Dosage: 127 MILLIGRAM, TOTAL

REACTIONS (2)
  - Administration site extravasation [Recovering/Resolving]
  - Muscle necrosis [Recovering/Resolving]
